FAERS Safety Report 18564213 (Version 1)
Quarter: 2020Q4

REPORT INFORMATION
  Report Type: Spontaneous
  Country: US (occurrence: US)
  Receive Date: 20201005
  Receipt Date: 20201005
  Transmission Date: 20210114
  Serious: Yes (Other)
  Sender: FDA-Public Use
  Company Number: None

PATIENT
  Age: 6 Decade
  Sex: Male

DRUGS (6)
  1. THYMOSIN [Suspect]
     Active Substance: THYMOSIN
     Indication: COVID-19
     Dosage: FREQUENCY: 12 H FOR 14 DAYS, AND ONCE PER DAY FOR 5 DAYS STARTING ON DAY 15.
     Route: 058
     Dates: start: 2020
  2. METHYLPREDNISOLONE. [Suspect]
     Active Substance: METHYLPREDNISOLONE
     Indication: COVID-19
     Dosage: FREQUENCY: 40 MG WAS ADMINISTERED BY INTRAVENOUS DRIP INFUSION EVERY 8 H, ON DAY 2 IT WAS REDUCED TO EVERY 12 H FOR 3 DAYS, AND ONCE A DAY FROM DAY 5 FOR 2 DAYS, UNTIL IT WAS DISCONTINUED ON DAY 7/ APPROXIMATE DURATION: 7 DAYS
     Route: 041
     Dates: start: 2020
  3. RECOMBINANT HUMAN INTERFERON ALPHA 2B [Suspect]
     Active Substance: INTERFERON ALFA-2B
     Indication: COVID-19
     Route: 055
     Dates: start: 2020
  4. UMIFENOVIR. [Suspect]
     Active Substance: UMIFENOVIR
     Indication: COVID-19
     Route: 048
     Dates: start: 2020
  5. RIBAVIRIN. [Suspect]
     Active Substance: RIBAVIRIN
     Indication: COVID-19
     Route: 042
     Dates: start: 2020
  6. IMMUNOGLOBULINS, INTRAVENOUS [Suspect]
     Active Substance: HUMAN IMMUNOGLOBULIN G
     Indication: COVID-19
     Route: 042
     Dates: start: 2020

REACTIONS (3)
  - Off label use [None]
  - Plasmapheresis [None]
  - Fibrin D dimer increased [None]
